FAERS Safety Report 7673258-3 (Version None)
Quarter: 2011Q3

REPORT INFORMATION
  Report Type: 
  Country: None (occurrence: None)
  Receive Date: 20110810
  Receipt Date: 20110803
  Transmission Date: 20111222
  Serious: Yes (Other)
  Sender: FDA-Public Use
  Company Number: JP-PFIZER INC-2011177721

PATIENT
  Sex: Female

DRUGS (4)
  1. FLOMOX [Concomitant]
  2. MUCOSTA [Concomitant]
  3. AROMASIN [Suspect]
     Dosage: UNK
     Route: 048
     Dates: start: 20110615
  4. LOXONIN [Concomitant]

REACTIONS (3)
  - URINE OUTPUT DECREASED [None]
  - OEDEMA PERIPHERAL [None]
  - EYELID OEDEMA [None]
